FAERS Safety Report 10770495 (Version 2)
Quarter: 2015Q1

REPORT INFORMATION
  Report Type: Report from Study
  Country: DE (occurrence: DE)
  Receive Date: 20150206
  Receipt Date: 20150312
  Transmission Date: 20150721
  Serious: Yes (Congenital Anomaly, Other)
  Sender: FDA-Public Use
  Company Number: DE-AMGEN-DEUNI2015008998

PATIENT
  Age: 29 Year
  Sex: Female

DRUGS (2)
  1. PREDNISOLON                        /00016201/ [Concomitant]
     Active Substance: PREDNISOLONE
     Dosage: UNK
  2. ETANERCEPT [Suspect]
     Active Substance: ETANERCEPT
     Indication: PRODUCT USED FOR UNKNOWN INDICATION
     Dosage: 50 MG, QWK
     Route: 065
     Dates: start: 20140728

REACTIONS (1)
  - Aborted pregnancy [Unknown]

NARRATIVE: CASE EVENT DATE: 20141112
